FAERS Safety Report 5961820-5 (Version None)
Quarter: 2008Q4

REPORT INFORMATION
  Report Type: 
  Country: None (occurrence: None)
  Receive Date: 20081121
  Receipt Date: 20071109
  Transmission Date: 20090506
  Serious: No
  Sender: FDA-Public Use
  Company Number: US-BRISTOL-MYERS SQUIBB COMPANY-13977681

PATIENT
  Age: 64 Year
  Sex: Female
  Weight: 72 kg

DRUGS (10)
  1. AVALIDE [Suspect]
     Indication: HYPERTENSION
     Route: 048
     Dates: start: 19880101
  2. ASPIRIN [Concomitant]
  3. COQ10 [Concomitant]
  4. CALCIUM [Concomitant]
  5. POTASSIUM CHLORIDE [Concomitant]
  6. SELENIUM [Concomitant]
  7. MULTI-VITAMIN [Concomitant]
  8. ALEVE [Concomitant]
  9. LOVASTATIN [Concomitant]
  10. THERAGRAN-M [Concomitant]

REACTIONS (5)
  - BLOOD PRESSURE INCREASED [None]
  - HEADACHE [None]
  - INSOMNIA [None]
  - NOCTURIA [None]
  - PSYCHOMOTOR HYPERACTIVITY [None]
